FAERS Safety Report 20753054 (Version 1)
Quarter: 2022Q2

REPORT INFORMATION
  Report Type: Spontaneous
  Country: US (occurrence: None)
  Receive Date: 20220426
  Receipt Date: 20220426
  Transmission Date: 20220720
  Serious: No
  Sender: FDA-Public Use
  Company Number: US-ROCHE-2991902

PATIENT
  Sex: Female

DRUGS (12)
  1. ESBRIET [Suspect]
     Active Substance: PIRFENIDONE
     Indication: Sciatica
     Dosage: TAKE 1 TABLET (801 MG) BY MOUTH THREE TIMES A DAY
     Route: 048
  2. ASPIRIN [Concomitant]
     Active Substance: ASPIRIN
  3. CELEXA [Concomitant]
     Active Substance: CITALOPRAM HYDROBROMIDE
  4. FUROSEMIDE [Concomitant]
     Active Substance: FUROSEMIDE
  5. IBUPROFEN [Concomitant]
     Active Substance: IBUPROFEN
  6. LIPITOR [Concomitant]
     Active Substance: ATORVASTATIN CALCIUM
  7. LORATADINE [Concomitant]
     Active Substance: LORATADINE
  8. METOPROLOL [Concomitant]
     Active Substance: METOPROLOL
  9. POTASSIUM [Concomitant]
     Active Substance: POTASSIUM
  10. VITAMIN D3 [Concomitant]
     Active Substance: CHOLECALCIFEROL
  11. ZOLPIDEM [Concomitant]
     Active Substance: ZOLPIDEM TARTRATE
  12. VALIUM [Concomitant]
     Active Substance: DIAZEPAM

REACTIONS (2)
  - Memory impairment [Unknown]
  - Off label use [Unknown]
